FAERS Safety Report 12258065 (Version 1)
Quarter: 2016Q2

REPORT INFORMATION
  Report Type: Spontaneous
  Country: US (occurrence: US)
  Receive Date: 20160412
  Receipt Date: 20160412
  Transmission Date: 20160815
  Serious: No
  Sender: FDA-Public Use
  Company Number: US-SA-2015SA039357

PATIENT
  Age: 63 Year
  Sex: Female

DRUGS (2)
  1. ALLEGRA [Suspect]
     Active Substance: FEXOFENADINE HYDROCHLORIDE
     Indication: HOUSE DUST ALLERGY
     Dosage: FORM : GEL CAP
     Route: 048
     Dates: start: 20150323, end: 20150324
  2. ALLEGRA [Suspect]
     Active Substance: FEXOFENADINE HYDROCHLORIDE
     Indication: SEASONAL ALLERGY
     Dosage: FORM : GEL CAP
     Route: 048
     Dates: start: 20150323, end: 20150324

REACTIONS (1)
  - Drug effect incomplete [Unknown]
